FAERS Safety Report 6160387-9 (Version None)
Quarter: 2009Q2

REPORT INFORMATION
  Report Type: 
  Country: None (occurrence: None)
  Receive Date: 20090420
  Receipt Date: 20090413
  Transmission Date: 20091009
  Serious: No
  Sender: FDA-Public Use
  Company Number: US-ELI_LILLY_AND_COMPANY-US200904002515

PATIENT
  Age: 70 Year
  Sex: Male

DRUGS (7)
  1. CIALIS [Suspect]
     Indication: ERECTILE DYSFUNCTION
     Dosage: 2.5 MG, DAILY (1/D)
     Route: 065
  2. CIALIS [Suspect]
     Dosage: 10 MG, AS NEEDED
     Route: 065
  3. CIALIS [Suspect]
     Dosage: 20 MG, AS NEEDED
     Route: 065
     Dates: start: 20090101
  4. THYROXINE [Concomitant]
  5. ATENOLOL [Concomitant]
  6. ZETIA [Concomitant]
  7. AVALIDE [Concomitant]

REACTIONS (3)
  - DRUG INEFFECTIVE [None]
  - PHOTOPSIA [None]
  - VISION BLURRED [None]
